FAERS Safety Report 11822075 (Version 5)
Quarter: 2016Q3

REPORT INFORMATION
  Report Type: Spontaneous
  Country: US (occurrence: US)
  Receive Date: 20151210
  Receipt Date: 20160725
  Transmission Date: 20161109
  Serious: Yes (Hospitalization, Other)
  Sender: FDA-Public Use
  Company Number: US-JNJFOC-20150707838

PATIENT
  Age: 77 Year
  Sex: Male

DRUGS (17)
  1. IMBRUVICA [Suspect]
     Active Substance: IBRUTINIB
     Indication: CHRONIC LYMPHOCYTIC LEUKAEMIA
     Route: 048
     Dates: start: 20150904, end: 20160122
  2. KEFLEX [Concomitant]
     Active Substance: CEPHALEXIN
     Route: 048
     Dates: start: 20150522
  3. LORAZEPAM. [Concomitant]
     Active Substance: LORAZEPAM
  4. AZELASTINE [Concomitant]
     Active Substance: AZELASTINE
     Dosage: 137 MCG/INH (0.1%), BID
     Route: 045
     Dates: start: 20150513
  5. LOSARTAN. [Concomitant]
     Active Substance: LOSARTAN
     Route: 048
     Dates: start: 20130513
  6. ADVAIR HFA [Concomitant]
     Active Substance: FLUTICASONE PROPIONATE\SALMETEROL XINAFOATE
     Dosage: 250 MCG-50 MCG, BID
     Route: 048
     Dates: start: 20150513
  7. MONTELUKAST [Concomitant]
     Active Substance: MONTELUKAST SODIUM
     Route: 048
     Dates: start: 20150513
  8. IMBRUVICA [Suspect]
     Active Substance: IBRUTINIB
     Indication: CHRONIC LYMPHOCYTIC LEUKAEMIA
     Route: 048
     Dates: start: 20150604, end: 20150626
  9. IMBRUVICA [Suspect]
     Active Substance: IBRUTINIB
     Indication: CHRONIC LYMPHOCYTIC LEUKAEMIA
     Route: 048
     Dates: start: 20150627, end: 20150827
  10. OXYCODONE [Concomitant]
     Active Substance: OXYCODONE
     Route: 048
     Dates: start: 20130522
  11. PRILOSEC [Concomitant]
     Active Substance: OMEPRAZOLE MAGNESIUM
     Route: 048
     Dates: start: 20150513
  12. SPIRIVA [Concomitant]
     Active Substance: TIOTROPIUM BROMIDE MONOHYDRATE
     Dosage: 18 MCG, Q DAY
  13. LEVOFLOXACIN. [Concomitant]
     Active Substance: LEVOFLOXACIN
  14. IMBRUVICA [Suspect]
     Active Substance: IBRUTINIB
     Indication: CHRONIC LYMPHOCYTIC LEUKAEMIA
     Route: 048
     Dates: start: 20160123
  15. PREDNISONE. [Concomitant]
     Active Substance: PREDNISONE
     Route: 048
     Dates: start: 20150513
  16. ALBUTEROL. [Concomitant]
     Active Substance: ALBUTEROL
  17. CETIRIZINE [Concomitant]
     Active Substance: CETIRIZINE HYDROCHLORIDE
     Route: 048
     Dates: start: 20150513

REACTIONS (12)
  - Neck pain [Unknown]
  - Cellulitis [Recovering/Resolving]
  - Impaired healing [Unknown]
  - Dermatitis contact [Unknown]
  - Wound complication [Unknown]
  - Acne [Unknown]
  - Pemphigoid [Recovered/Resolved]
  - Diarrhoea [Recovered/Resolved]
  - Drug prescribing error [Not Recovered/Not Resolved]
  - Headache [Unknown]
  - Osteonecrosis [Unknown]
  - Stomatitis [Unknown]

NARRATIVE: CASE EVENT DATE: 2015
